FAERS Safety Report 20198815 (Version 20)
Quarter: 2025Q3

REPORT INFORMATION
  Report Type: Report from Study
  Country: US (occurrence: US)
  Receive Date: 20211217
  Receipt Date: 20250910
  Transmission Date: 20251020
  Serious: Yes (Hospitalization, Other)
  Sender: TAKEDA
  Company Number: US-TAKEDA-2020TUS046943

PATIENT
  Age: 72 Year
  Sex: Female
  Weight: 66 kg

DRUGS (13)
  1. HUMAN IMMUNOGLOBULIN G [Suspect]
     Active Substance: HUMAN IMMUNOGLOBULIN G
     Indication: Immunodeficiency common variable
     Dosage: 20 GRAM, Q4WEEKS
  2. HUMAN IMMUNOGLOBULIN G [Suspect]
     Active Substance: HUMAN IMMUNOGLOBULIN G
     Indication: Primary immunodeficiency syndrome
     Dosage: 10 GRAM, MONTHLY
  3. ACETAMINOPHEN [Concomitant]
     Active Substance: ACETAMINOPHEN
  4. ALLOPURINOL [Concomitant]
     Active Substance: ALLOPURINOL
  5. LIDOCAINE [Concomitant]
     Active Substance: LIDOCAINE
  6. GLYBURIDE [Concomitant]
     Active Substance: GLYBURIDE
  7. LANTUS [Concomitant]
     Active Substance: INSULIN GLARGINE
  8. VASCEPA [Concomitant]
     Active Substance: ICOSAPENT ETHYL
  9. PENTOXIFYLLINE [Concomitant]
     Active Substance: PENTOXIFYLLINE
  10. DIPHENHYDRAMINE HYDROCHLORIDE [Concomitant]
     Active Substance: DIPHENHYDRAMINE HYDROCHLORIDE
  11. BENICAR [Concomitant]
     Active Substance: OLMESARTAN MEDOXOMIL
  12. DIPHENHYDRAMINE [Concomitant]
     Active Substance: DIPHENHYDRAMINE
  13. EPINEPHRINE [Concomitant]
     Active Substance: EPINEPHRINE

REACTIONS (26)
  - Type 2 diabetes mellitus [Unknown]
  - Glomerular filtration rate decreased [Unknown]
  - Breast cancer stage I [Unknown]
  - Sinus disorder [Unknown]
  - Scar [Unknown]
  - Infusion related reaction [Unknown]
  - Renal disorder [Unknown]
  - Infusion site discharge [Unknown]
  - Nasopharyngitis [Recovered/Resolved]
  - Blood cholesterol abnormal [Unknown]
  - Pharyngitis streptococcal [Unknown]
  - Upper respiratory tract infection [Unknown]
  - Infusion site haemorrhage [Unknown]
  - Infusion site mass [Unknown]
  - Malaise [Unknown]
  - Pain in extremity [Unknown]
  - Chills [Recovered/Resolved]
  - Infusion site pruritus [Unknown]
  - Headache [Recovered/Resolved]
  - Bronchitis [Recovered/Resolved]
  - COVID-19 [Recovered/Resolved]
  - Lack of infusion site rotation [Unknown]
  - Wrong technique in product usage process [Unknown]
  - Illness [Unknown]
  - Product temperature excursion issue [Unknown]
  - Poor quality product administered [Unknown]

NARRATIVE: CASE EVENT DATE: 20211210
